FAERS Safety Report 7802043-4 (Version None)
Quarter: 2011Q4

REPORT INFORMATION
  Report Type: 
  Country: None (occurrence: None)
  Receive Date: 20111007
  Receipt Date: 20111003
  Transmission Date: 20120403
  Serious: Yes (Other)
  Sender: FDA-Public Use
  Company Number: US-PFIZER INC-2011235829

PATIENT
  Sex: Female
  Weight: 59.4 kg

DRUGS (8)
  1. LYRICA [Suspect]
     Indication: FIBROMYALGIA
     Dosage: 75 MG, 3X/DAY
     Route: 048
     Dates: start: 20080101, end: 20110101
  2. CYMBALTA [Concomitant]
     Indication: ANXIETY
  3. XANAX [Concomitant]
     Indication: SLEEP DISORDER
     Dosage: 0.25 MG, 3X/DAY
  4. CYMBALTA [Concomitant]
     Indication: DEPRESSION
     Dosage: 60 MG DAILY
  5. LISINOPRIL [Concomitant]
     Indication: HYPERTENSION
     Dosage: 10 MG DAILY
  6. HYDROCODONE [Concomitant]
     Indication: PAIN
     Dosage: 7.5/500 MG, AS NEEDED
  7. HYDROCODONE [Concomitant]
     Indication: GASTROINTESTINAL DISORDER
  8. LYRICA [Suspect]
     Dosage: 75 MG, 3X/DAY
     Dates: start: 20110101

REACTIONS (1)
  - WITHDRAWAL SYNDROME [None]
